FAERS Safety Report 8773960 (Version 3)
Quarter: 2012Q4

REPORT INFORMATION
  Report Type: Report from Study
  Country: US (occurrence: US)
  Receive Date: 20120910
  Receipt Date: 20121121
  Transmission Date: 20130627
  Serious: Yes (Hospitalization, Other)
  Sender: FDA-Public Use
  Company Number: US-ABBOTT-12P-163-0975106-00

PATIENT
  Sex: Male
  Weight: 93.07 kg

DRUGS (4)
  1. HUMIRA 40 MG/0.8 ML PEN [Suspect]
     Indication: ANKYLOSING SPONDYLITIS
     Dates: start: 2005
  2. ADDERALL [Concomitant]
     Indication: PRODUCT USED FOR UNKNOWN INDICATION
  3. ALEVE [Concomitant]
     Indication: PRODUCT USED FOR UNKNOWN INDICATION
  4. ADVIL [Concomitant]
     Indication: PRODUCT USED FOR UNKNOWN INDICATION

REACTIONS (10)
  - Diplopia [Unknown]
  - Pulmonary embolism [Unknown]
  - Chest pain [Unknown]
  - Pleuritic pain [Unknown]
  - Ocular myasthenia [Not Recovered/Not Resolved]
  - Factor V Leiden mutation [Unknown]
  - Unevaluable event [Unknown]
  - Meningioma benign [Unknown]
  - Neck pain [Unknown]
  - Back pain [Unknown]
